FAERS Safety Report 5110111-3 (Version None)
Quarter: 2006Q4

REPORT INFORMATION
  Report Type: 
  Country: None (occurrence: None)
  Receive Date: 20060918
  Receipt Date: 20060907
  Transmission Date: 20070319
  Serious: Yes (Hospitalization)
  Sender: FDA-Public Use
  Company Number: BASF-06-012

PATIENT
  Age: 61 Year
  Sex: Female

DRUGS (6)
  1. SILVER SULFADIAZINE [Suspect]
     Dosage: 200G/DAY - TOPICAL
     Route: 061
  2. NICARDIPINE (LOXEN) [Concomitant]
  3. MORPHINE (MOSCONTIN) [Concomitant]
  4. ANETHOLTRITHIONE (SULFARLEM) [Concomitant]
  5. PAROXETINE (DEROXAL) [Concomitant]
  6. GENERAL CORTICOSTEROIDS [Concomitant]

REACTIONS (9)
  - ACUTE PULMONARY OEDEMA [None]
  - BLOOD PRESSURE INCREASED [None]
  - DEPRESSED LEVEL OF CONSCIOUSNESS [None]
  - DRUG TOXICITY [None]
  - HAEMODIALYSIS [None]
  - HAEMOGLOBIN DECREASED [None]
  - OLIGURIA [None]
  - RENAL IMPAIRMENT [None]
  - WHITE BLOOD CELL COUNT DECREASED [None]
